FAERS Safety Report 13721599 (Version 1)
Quarter: 2017Q3

REPORT INFORMATION
  Report Type: Spontaneous
  Country: BR (occurrence: BR)
  Receive Date: 20170706
  Receipt Date: 20170706
  Transmission Date: 20171127
  Serious: Yes (Death, Hospitalization)
  Sender: FDA-Public Use
  Company Number: BR-B.I. PHARMACEUTICALS,INC./RIDGEFIELD-2017-BI-037554

PATIENT
  Age: 55 Year
  Sex: Female
  Weight: 44.7 kg

DRUGS (3)
  1. TRAYENTA [Suspect]
     Active Substance: LINAGLIPTIN
     Indication: TYPE 2 DIABETES MELLITUS
     Route: 048
     Dates: start: 20170607
  2. ENALAPRIL [Concomitant]
     Active Substance: ENALAPRIL
     Indication: HYPERTENSION
     Route: 048
  3. AZUKON [Concomitant]
     Active Substance: GLICLAZIDE
     Indication: PANCREATIC DISORDER
     Route: 048
     Dates: start: 20170607

REACTIONS (3)
  - Gastrointestinal infection [Fatal]
  - Cardiac arrest [Fatal]
  - Blood pressure decreased [Fatal]

NARRATIVE: CASE EVENT DATE: 20170611
